FAERS Safety Report 21224065 (Version 1)
Quarter: 2022Q3

REPORT INFORMATION
  Report Type: Spontaneous
  Country: US (occurrence: US)
  Receive Date: 20220817
  Receipt Date: 20220817
  Transmission Date: 20221026
  Serious: No
  Sender: FDA-Public Use
  Company Number: US-SA-2022MK000091

PATIENT
  Age: 56 Year
  Sex: Female
  Weight: 74.910 kg

DRUGS (4)
  1. AFREZZA [Suspect]
     Active Substance: INSULIN HUMAN
     Indication: Type 1 diabetes mellitus
     Dosage: 4-12 UNITS WITH MEALS
     Dates: start: 2016
  2. AFREZZA [Suspect]
     Active Substance: INSULIN HUMAN
     Dosage: 4-12 UNITS WITH MEALS
     Dates: start: 2016
  3. AFREZZA [Suspect]
     Active Substance: INSULIN HUMAN
     Dosage: 4-12 UNITS WITH MEALS
     Dates: start: 2016
  4. HUMALOG [Concomitant]
     Active Substance: INSULIN LISPRO
     Indication: Type 1 diabetes mellitus
     Route: 058

REACTIONS (2)
  - Expired product administered [Recovering/Resolving]
  - Off label use [Unknown]
